FAERS Safety Report 21062225 (Version 2)
Quarter: 2022Q4

REPORT INFORMATION
  Report Type: Spontaneous
  Country: BR (occurrence: BR)
  Receive Date: 20220711
  Receipt Date: 20221220
  Transmission Date: 20230113
  Serious: Yes (Hospitalization)
  Sender: FDA-Public Use
  Company Number: BR-BRISTOL-MYERS SQUIBB COMPANY-2022-067830

PATIENT
  Sex: Female

DRUGS (4)
  1. NIVOLUMAB [Suspect]
     Active Substance: NIVOLUMAB
     Indication: Non-small cell lung cancer
     Dosage: DOSE : 360MG,1MG/KG, 200MG/M2;     FREQ : NIV: EVERY 3 WEEKS,
     Dates: start: 201810
  2. IPILIMUMAB [Suspect]
     Active Substance: IPILIMUMAB
     Indication: Non-small cell lung cancer
     Dosage: DOSE : 360MG,1MG/KG, 200MG/M2;     FREQ IPI: EVERY 6 WEEKS
     Dates: start: 201810
  3. PACLITAXEL [Suspect]
     Active Substance: PACLITAXEL
     Indication: Non-small cell lung cancer
     Dates: start: 201810
  4. CARBOPLATIN [Suspect]
     Active Substance: CARBOPLATIN
     Indication: Non-small cell lung cancer
     Dates: start: 201810

REACTIONS (5)
  - Confusional state [Unknown]
  - Anaemia [Unknown]
  - Alopecia [Unknown]
  - Decreased appetite [Unknown]
  - Intentional product use issue [Unknown]
